FAERS Safety Report 5709025-7 (Version None)
Quarter: 2008Q2

REPORT INFORMATION
  Report Type: 
  Country: None (occurrence: None)
  Receive Date: 20080416
  Receipt Date: 20080416
  Transmission Date: 20081010
  Serious: Yes (Hospitalization)
  Sender: FDA-Public Use
  Company Number: None

PATIENT
  Age: 27 Year
  Sex: Male

DRUGS (1)
  1. RISPERDAL CONSTA [Suspect]
     Indication: SCHIZOPHRENIA, PARANOID TYPE
     Dosage: 50MG IM Q 2 WEEKS
     Route: 030
     Dates: start: 20071113, end: 20080124

REACTIONS (2)
  - BLOOD GLUCOSE INCREASED [None]
  - VOMITING [None]
